FAERS Safety Report 9887715 (Version 1)
Quarter: 2013Q4

REPORT INFORMATION
  Report Type: Spontaneous
  Country: US (occurrence: None)
  Receive Date: 20131223
  Receipt Date: 20131223
  Transmission Date: 20140711
  Serious: No
  Sender: FDA-Public Use
  Company Number: 220033LEO

PATIENT
  Age: 62 Year
  Sex: Male

DRUGS (1)
  1. PICATO (0.05%) [Suspect]
     Indication: PRECANCEROUS SKIN LESION
     Route: 061
     Dates: start: 20121228, end: 20121229

REACTIONS (7)
  - Application site erythema [None]
  - Application site pain [None]
  - Application site scab [None]
  - Application site vesicles [None]
  - Application site swelling [None]
  - Application site pain [None]
  - Drug administered at inappropriate site [None]
